FAERS Safety Report 18749316 (Version 1)
Quarter: 2021Q1

REPORT INFORMATION
  Report Type: Report from Study
  Country: CN (occurrence: CN)
  Receive Date: 20210116
  Receipt Date: 20210116
  Transmission Date: 20210419
  Serious: Yes (Life-Threatening, Other)
  Sender: FDA-Public Use
  Company Number: CN-ACCORD-214925

PATIENT
  Age: 62 Year
  Sex: Male

DRUGS (4)
  1. OXALIPLATIN. [Suspect]
     Active Substance: OXALIPLATIN
     Indication: T-CELL LYMPHOMA STAGE IV
     Dosage: 130 MG/M2 (DAY 1) EVERY 3 WEEKS
  2. PEGASPARGASE [Suspect]
     Active Substance: PEGASPARGASE
     Indication: T-CELL LYMPHOMA STAGE IV
     Dosage: 2000 U/M2 (DAY 1)
  3. SINTILIMAB. [Suspect]
     Active Substance: SINTILIMAB
     Indication: T-CELL LYMPHOMA STAGE IV
  4. GEMCITABINE/GEMCITABINE HYDROCHLORIDE [Suspect]
     Active Substance: GEMCITABINE\GEMCITABINE HYDROCHLORIDE
     Indication: T-CELL LYMPHOMA STAGE IV
     Dosage: 1 G/M2 (DAYS 1 AND 8)

REACTIONS (1)
  - Adverse event [Recovered/Resolved]
